FAERS Safety Report 8828304 (Version 1)
Quarter: 2012Q4

REPORT INFORMATION
  Report Type: 
  Country: HU (occurrence: HU)
  Receive Date: 20121005
  Receipt Date: 20121005
  Transmission Date: 20130627
  Serious: Yes (Other)
  Sender: FDA-Public Use
  Company Number: HU-PFIZER INC-2012243532

PATIENT
  Age: 60 Year
  Sex: Female
  Weight: 73 kg

DRUGS (16)
  1. LYRICA [Suspect]
     Dosage: taking 1X 75 mg in the morning and 1X 150 mg in the evening
     Dates: start: 20110804, end: 2012
  2. LYRICA [Suspect]
     Dosage: 75 mg, 2x/day
     Dates: start: 2012, end: 2012
  3. LYRICA [Suspect]
     Dosage: 75 mg, 1x/day
     Dates: start: 2012
  4. DIAPREL [Concomitant]
     Dosage: UNK
  5. CONCOR [Concomitant]
     Dosage: UNK
  6. PARIET [Concomitant]
     Dosage: UNK
  7. L-THYROXIN [Concomitant]
     Dosage: UNK
  8. METHYLPREDNISOLONE [Concomitant]
     Dosage: UNK
  9. ARAVA [Concomitant]
     Dosage: UNK
  10. XANAX [Concomitant]
     Dosage: UNK
  11. IRBESARTAN [Concomitant]
     Dosage: UNK
  12. CALCIUM [Concomitant]
     Dosage: UNK
     Dates: start: 20110804
  13. VITAMIN D [Concomitant]
     Dosage: UNK
     Dates: start: 20110804
  14. ZOCOR [Concomitant]
     Dosage: UNK
  15. NAFTILONG [Concomitant]
     Dosage: UNK
  16. OMEGA 3 [Concomitant]
     Dosage: UNK

REACTIONS (18)
  - Angina pectoris [Not Recovered/Not Resolved]
  - Suicidal ideation [Not Recovered/Not Resolved]
  - Blood pressure increased [Not Recovered/Not Resolved]
  - Hallucination [Not Recovered/Not Resolved]
  - Depression [Not Recovered/Not Resolved]
  - Dyspnoea [Not Recovered/Not Resolved]
  - Speech disorder [Not Recovered/Not Resolved]
  - Insomnia [Not Recovered/Not Resolved]
  - Restlessness [Not Recovered/Not Resolved]
  - Irritability [Not Recovered/Not Resolved]
  - Nervousness [Not Recovered/Not Resolved]
  - Hyperhidrosis [Not Recovered/Not Resolved]
  - Chills [Not Recovered/Not Resolved]
  - Nightmare [Not Recovered/Not Resolved]
  - Pain in extremity [Not Recovered/Not Resolved]
  - Visual impairment [Not Recovered/Not Resolved]
  - Hearing impaired [Not Recovered/Not Resolved]
  - Drug ineffective [Not Recovered/Not Resolved]
